FAERS Safety Report 8503687-7 (Version None)
Quarter: 2012Q3

REPORT INFORMATION
  Report Type: 
  Country: None (occurrence: None)
  Receive Date: 20120711
  Receipt Date: 20120703
  Transmission Date: 20120928
  Serious: Yes (Other)
  Sender: FDA-Public Use
  Company Number: ES-B.I. PHARMACEUTICALS,INC./RIDGEFIELD-2012-BP-15010YA

PATIENT
  Sex: Female
  Weight: 55 kg

DRUGS (9)
  1. SIMVASTATIN [Concomitant]
     Indication: HYPERCHOLESTEROLAEMIA
     Route: 048
  2. ENALAPRIL MALEATE [Concomitant]
     Indication: HYPERTENSION
     Route: 048
     Dates: start: 20110701
  3. NOLOTIL (METAMIZOLE MAGNESIUM) [Concomitant]
  4. IBUPROFEN [Concomitant]
  5. LEVOTHROID [Concomitant]
     Route: 048
     Dates: start: 20110101
  6. TRAMADOL HYDROCHLORIDE [Concomitant]
     Indication: PAIN
     Route: 048
     Dates: start: 20040101
  7. TRIPTIZOL (AMITRPTYLINE HYDROCHLORIDE) [Concomitant]
     Indication: DEPRESSION
     Route: 048
     Dates: start: 20041201
  8. LEVOTHROID [Concomitant]
     Indication: HYPOTHYROIDISM
     Route: 048
     Dates: start: 20110101
  9. TAMSULOSIN HCL [Suspect]
     Indication: DYSURIA
     Dosage: 0.4 MG
     Route: 048
     Dates: start: 20120621

REACTIONS (2)
  - OFF LABEL USE [None]
  - INCONTINENCE [None]
